FAERS Safety Report 5272686-3 (Version None)
Quarter: 2007Q1

REPORT INFORMATION
  Report Type: 
  Country: None (occurrence: None)
  Receive Date: 20070322
  Receipt Date: 20070307
  Transmission Date: 20070707
  Serious: Yes (Hospitalization)
  Sender: FDA-Public Use
  Company Number: HQWYE166108MAR07

PATIENT
  Sex: Female
  Weight: 53 kg

DRUGS (7)
  1. ENBREL [Suspect]
     Indication: RHEUMATOID ARTHRITIS
     Route: 058
     Dates: start: 20060623, end: 20060926
  2. VOLTAREN [Concomitant]
     Indication: RHEUMATOID ARTHRITIS
     Dosage: UNKNOWN
     Route: 048
  3. NORVASC [Concomitant]
     Dosage: UNKNOWN
     Route: 048
  4. MUCOSTA [Concomitant]
     Dosage: UNKNOWN
     Route: 048
  5. FOSAMAX [Concomitant]
     Dosage: UNKNOWN
     Route: 048
  6. PREDONINE [Concomitant]
     Indication: RHEUMATOID ARTHRITIS
     Dosage: UNKNOWN
     Route: 048
  7. GASTER [Concomitant]
     Dosage: UNKNOWN
     Route: 048

REACTIONS (1)
  - UVEITIS [None]
